FAERS Safety Report 7718582-0 (Version None)
Quarter: 2011Q3

REPORT INFORMATION
  Report Type: 
  Country: None (occurrence: None)
  Receive Date: 20110830
  Receipt Date: 20110816
  Transmission Date: 20111222
  Serious: Yes (Other)
  Sender: FDA-Public Use
  Company Number: US-ELI_LILLY_AND_COMPANY-US200707005331

PATIENT
  Sex: Female

DRUGS (11)
  1. ZOCOR [Concomitant]
     Dosage: UNK
     Dates: end: 20070101
  2. ALBUTEROL SULFATE AUTOHALER [Concomitant]
  3. FOSAMAX [Concomitant]
  4. CALCIUM + VITAMIN D [Concomitant]
     Dosage: 4 DF, QD
  5. VITAMIN TAB [Concomitant]
  6. FISH OIL [Concomitant]
  7. BIOTIN [Concomitant]
  8. COENZYME Q10 [Concomitant]
  9. FORTEO [Suspect]
     Indication: OSTEOPOROSIS
     Dosage: 20 UG, DAILY (1/D)
     Dates: start: 20070720
  10. ADVAIR DISKUS 100/50 [Concomitant]
  11. SINGULAIR [Concomitant]

REACTIONS (4)
  - PAIN [None]
  - HIP FRACTURE [None]
  - FALL [None]
  - INJECTION SITE HAEMATOMA [None]
